FAERS Safety Report 6711933-5 (Version None)
Quarter: 2010Q2

REPORT INFORMATION
  Report Type: 
  Country: None (occurrence: None)
  Receive Date: 20100505
  Receipt Date: 20090903
  Transmission Date: 20101027
  Serious: No
  Sender: FDA-Public Use
  Company Number: US-TYCO HEALTHCARE/MALLINCKRODT-T200901634

PATIENT
  Sex: Male
  Weight: 72.562 kg

DRUGS (2)
  1. METHADONE HCL [Suspect]
     Indication: PAIN
     Dosage: ONE TABLET QID
     Route: 048
     Dates: start: 20090727, end: 20090101
  2. METHADONE HCL [Suspect]
     Dosage: ONE TABLET TID
     Route: 048
     Dates: start: 20090801

REACTIONS (6)
  - CONSTIPATION [None]
  - CONTUSION [None]
  - FEELING ABNORMAL [None]
  - HYPERHIDROSIS [None]
  - MICTURITION DISORDER [None]
  - MUSCLE SPASMS [None]
